FAERS Safety Report 13843273 (Version 1)
Quarter: 2017Q3

REPORT INFORMATION
  Report Type: Spontaneous
  Country: US (occurrence: US)
  Receive Date: 20170808
  Receipt Date: 20170808
  Transmission Date: 20171127
  Serious: Yes (Life-Threatening, Hospitalization, Disabling, Other)
  Sender: FDA-Public Use
  Company Number: None

PATIENT
  Age: 57 Year
  Sex: Female
  Weight: 78.75 kg

DRUGS (9)
  1. NOVOLOG [Concomitant]
     Active Substance: INSULIN ASPART
  2. PRAVASTATIN. [Concomitant]
     Active Substance: PRAVASTATIN
  3. RISPERIDONE. [Concomitant]
     Active Substance: RISPERIDONE
  4. DULOXETINE. [Concomitant]
     Active Substance: DULOXETINE
  5. GABAPENTIN. [Concomitant]
     Active Substance: GABAPENTIN
  6. ALEVE [Concomitant]
     Active Substance: NAPROXEN SODIUM
  7. LOW DOSE ASPIRIN [Concomitant]
     Active Substance: ASPIRIN
  8. HUMERA [Suspect]
     Active Substance: ADALIMUMAB
     Indication: RHEUMATOID ARTHRITIS
     Route: 058
     Dates: start: 20140610, end: 20150310
  9. LEVEMIR [Concomitant]
     Active Substance: INSULIN DETEMIR

REACTIONS (6)
  - Cataract [None]
  - Oral herpes [None]
  - Memory impairment [None]
  - Coma [None]
  - Brain injury [None]
  - Meningitis [None]

NARRATIVE: CASE EVENT DATE: 20150525
